FAERS Safety Report 8816101 (Version 1)
Quarter: 2012Q4

REPORT INFORMATION
  Report Type: 
  Country: FR (occurrence: FR)
  Receive Date: 20120928
  Receipt Date: 20120928
  Transmission Date: 20130627
  Serious: Yes (Other)
  Sender: FDA-Public Use
  Company Number: FR-JNJFOC-20120909942

PATIENT
  Age: 76 Year
  Sex: Male

DRUGS (3)
  1. ZYTIGA [Suspect]
     Indication: PROSTATE CANCER
     Route: 048
     Dates: start: 20120707, end: 20120911
  2. CORTANCYL [Concomitant]
     Indication: PROSTATE CANCER
     Route: 065
     Dates: start: 20120911
  3. CORTANCYL [Concomitant]
     Indication: PROSTATE CANCER
     Route: 065
     Dates: start: 20120707, end: 20120911

REACTIONS (4)
  - Gamma-glutamyltransferase increased [Unknown]
  - Aspartate aminotransferase increased [Unknown]
  - Alanine aminotransferase increased [Unknown]
  - Serum ferritin increased [Unknown]
